FAERS Safety Report 7018584-6 (Version None)
Quarter: 2010Q3

REPORT INFORMATION
  Report Type: 
  Country: None (occurrence: None)
  Receive Date: 20100928
  Receipt Date: 20100920
  Transmission Date: 20110219
  Serious: Yes (Other)
  Sender: FDA-Public Use
  Company Number: FR-ALLERGAN-1011156US

PATIENT
  Age: 73 Year
  Sex: Female

DRUGS (14)
  1. BIMATOPROST AND TIMOLOL MALEATE [Suspect]
     Indication: GLAUCOMA
     Dosage: 1 GTT, QD
     Route: 047
     Dates: start: 20100816, end: 20100901
  2. CORTICOSTEROIDS [Concomitant]
     Indication: RHEUMATOID ARTHRITIS
  3. LYSANXIA [Concomitant]
     Dosage: 10 MG, QD
  4. CORTANCYL [Concomitant]
     Dosage: 1 MG, PRN
  5. OMEPRAZOLE [Concomitant]
     Dosage: 20 MG, QD
  6. HYLOVIS [Concomitant]
     Dosage: 1 GTT, BID
     Route: 047
  7. VITAMIN D3 [Concomitant]
     Dosage: UNK
  8. RED RICE YEAST [Concomitant]
  9. BROMELAIN [Concomitant]
  10. ADVANCED ANTIOXIDANT [Concomitant]
  11. VITAMIN E [Concomitant]
     Dosage: 400 IU, QD
  12. VECTOMEGA [Concomitant]
     Dosage: UNK
  13. CA-MG [Concomitant]
     Dosage: UNK
  14. CHARDON MARIE [Concomitant]
     Dosage: UNK

REACTIONS (3)
  - FATIGUE [None]
  - GAMMA-GLUTAMYLTRANSFERASE INCREASED [None]
  - NAUSEA [None]
